FAERS Safety Report 12693648 (Version 1)
Quarter: 2016Q3

REPORT INFORMATION
  Report Type: Spontaneous
  Country: FI (occurrence: FI)
  Receive Date: 20160829
  Receipt Date: 20160829
  Transmission Date: 20161109
  Serious: Yes (Death)
  Sender: FDA-Public Use
  Company Number: FI-BAXTER-2016BAX043139

PATIENT
  Sex: Male

DRUGS (2)
  1. BICART 720 [Suspect]
     Active Substance: SODIUM BICARBONATE
     Indication: HAEMODIALYSIS
     Route: 010
  2. NATRIUMKLORID BAXTER 9 MG/ML INFUUSIONESTE, LIUOS [Suspect]
     Active Substance: SODIUM CHLORIDE
     Indication: DEVICE PRIMING
     Dosage: SALINE BAG
     Route: 010

REACTIONS (1)
  - Disease progression [Fatal]
